FAERS Safety Report 7093220-1 (Version None)
Quarter: 2010Q4

REPORT INFORMATION
  Report Type: 
  Country: None (occurrence: None)
  Receive Date: 20101110
  Receipt Date: 20101103
  Transmission Date: 20110411
  Serious: Yes (Death, Hospitalization)
  Sender: FDA-Public Use
  Company Number: IT-BAYER-201042961GPV

PATIENT
  Age: 75 Year
  Sex: Male

DRUGS (8)
  1. NEXAVAR [Suspect]
     Indication: HEPATIC NEOPLASM MALIGNANT
     Route: 048
     Dates: start: 20100920, end: 20101007
  2. NEXAVAR [Suspect]
     Route: 048
     Dates: start: 20100916, end: 20100920
  3. NEXAVAR [Suspect]
     Route: 048
     Dates: start: 20100903, end: 20100916
  4. TICLID [Concomitant]
     Indication: ANGIOPATHY
     Dates: start: 20090101
  5. FUROSEMIDE [Concomitant]
     Indication: LIVER DISORDER
     Dates: start: 20050101
  6. HUMALOG [Concomitant]
     Indication: DIABETES MELLITUS
     Dates: start: 20100902
  7. INDERAL [Concomitant]
     Indication: PORTAL HYPERTENSION
     Dates: start: 20100903
  8. MEGACE [Concomitant]
     Indication: CACHEXIA
     Dates: start: 20100903

REACTIONS (8)
  - DEPRESSION [None]
  - DIARRHOEA [None]
  - GASTROINTESTINAL HAEMORRHAGE [None]
  - HEPATIC FAILURE [None]
  - HEPATIC FUNCTION ABNORMAL [None]
  - INSOMNIA [None]
  - JAUNDICE [None]
  - PSYCHOMOTOR HYPERACTIVITY [None]
